FAERS Safety Report 7550073-2 (Version None)
Quarter: 2011Q2

REPORT INFORMATION
  Report Type: 
  Country: None (occurrence: None)
  Receive Date: 20110615
  Receipt Date: 20110613
  Transmission Date: 20111010
  Serious: No
  Sender: FDA-Public Use
  Company Number: US-PFIZER INC-2011129765

PATIENT
  Sex: Male
  Weight: 86.168 kg

DRUGS (9)
  1. METFORMIN [Concomitant]
     Indication: DIABETES MELLITUS
     Dosage: 100 MG, DAILY
  2. GLYBURIDE [Concomitant]
     Indication: DIABETES MELLITUS
     Dosage: UNK
  3. SERTRALINE HYDROCHLORIDE [Suspect]
     Indication: DEPRESSION
     Dosage: 100 MG, DAILY
     Route: 048
     Dates: start: 20110101, end: 20110501
  4. METOPROLOL [Concomitant]
     Indication: BLOOD PRESSURE ABNORMAL
     Dosage: 50 MG, 2X/DAY
  5. DIGOXIN [Concomitant]
     Indication: CARDIAC DISORDER
     Dosage: 0.125 MG, DAILY
  6. PRISTIQ [Suspect]
     Indication: DEPRESSION
     Dosage: 15 MG, DAILY
     Route: 048
     Dates: start: 20110501
  7. LANTUS [Concomitant]
     Indication: DIABETES MELLITUS
     Dosage: 4 IU, DAILY
  8. PRISTIQ [Suspect]
     Indication: ANXIETY
  9. SERTRALINE HYDROCHLORIDE [Suspect]
     Indication: ANXIETY

REACTIONS (3)
  - FEELING ABNORMAL [None]
  - MEDICATION RESIDUE [None]
  - MALAISE [None]
